FAERS Safety Report 17184099 (Version 1)
Quarter: 2019Q4

REPORT INFORMATION
  Report Type: Spontaneous
  Country: US (occurrence: US)
  Receive Date: 20191220
  Receipt Date: 20191220
  Transmission Date: 20200122
  Serious: No
  Sender: FDA-Public Use
  Company Number: US-RECKITT BENCKISER HEALTHCARE INT LIMITED-RB-94443-2018

PATIENT
  Age: 6 Year
  Sex: Female
  Weight: 20.41 kg

DRUGS (1)
  1. DELSYM [Suspect]
     Active Substance: DEXTROMETHORPHAN
     Indication: PRODUCT USED FOR UNKNOWN INDICATION
     Dosage: 10 MILLILITER, SINGLE
     Route: 065
     Dates: start: 20181116

REACTIONS (2)
  - Accidental overdose [Unknown]
  - Restlessness [Unknown]

NARRATIVE: CASE EVENT DATE: 20181116
